FAERS Safety Report 9370523 (Version 1)
Quarter: 2013Q2

REPORT INFORMATION
  Report Type: Spontaneous
  Country: US (occurrence: US)
  Receive Date: 20130626
  Receipt Date: 20130626
  Transmission Date: 20140414
  Serious: Yes (Other)
  Sender: FDA-Public Use
  Company Number: US-ROXANE LABORATORIES, INC.-2013-RO-01043RO

PATIENT
  Sex: Male

DRUGS (1)
  1. METHADONE [Suspect]
     Route: 048

REACTIONS (3)
  - Tongue disorder [Unknown]
  - Oesophageal disorder [Unknown]
  - Gastric disorder [Unknown]
